FAERS Safety Report 4965084-0 (Version None)
Quarter: 2006Q1

REPORT INFORMATION
  Report Type: 
  Country: None (occurrence: None)
  Receive Date: 20060201
  Receipt Date: 20051003
  Transmission Date: 20060701
  Serious: No
  Sender: FDA-Public Use
  Company Number: 2005PV002739

PATIENT
  Age: 47 Year
  Sex: Female
  Weight: 92.0802 kg

DRUGS (11)
  1. BYETTA [Suspect]
     Indication: INSULIN RESISTANCE
     Dosage: SEE IMAGE
     Route: 058
     Dates: start: 20050702, end: 20050803
  2. BYETTA [Suspect]
     Indication: INSULIN RESISTANCE
     Dosage: SEE IMAGE
     Route: 058
     Dates: start: 20050804, end: 20050813
  3. BYETTA [Suspect]
     Indication: INSULIN RESISTANCE
     Dosage: SEE IMAGE
     Route: 058
     Dates: start: 20050814
  4. ZIAC [Concomitant]
  5. LIPITOR [Concomitant]
  6. LEVOXYL [Concomitant]
  7. PROZAC [Concomitant]
  8. NEXIUM [Concomitant]
  9. METHOTREXATE [Concomitant]
  10. VITAMIN B-12 [Concomitant]
  11. ACTOS [Concomitant]

REACTIONS (3)
  - ALOPECIA [None]
  - HYPOGLYCAEMIA [None]
  - NAUSEA [None]
